FAERS Safety Report 17226920 (Version 4)
Quarter: 2021Q2

REPORT INFORMATION
  Report Type: Spontaneous
  Country: US (occurrence: US)
  Receive Date: 20200103
  Receipt Date: 20210428
  Transmission Date: 20210716
  Serious: Yes (Disabling, Other)
  Sender: FDA-Public Use
  Company Number: US-SA-2019SA362630

PATIENT
  Sex: Male

DRUGS (2)
  1. ZANTAC 150 (RANITIDINE HYDROCHLORIDE) [Suspect]
     Active Substance: RANITIDINE HYDROCHLORIDE
     Indication: DYSPEPSIA
     Dosage: 150 MG
     Route: 065
  2. ZANTAC 150 (RANITIDINE HYDROCHLORIDE) [Suspect]
     Active Substance: RANITIDINE HYDROCHLORIDE

REACTIONS (13)
  - Plasma cell myeloma [Unknown]
  - Emotional distress [Unknown]
  - Pelvic fracture [Unknown]
  - Arthralgia [Unknown]
  - Anxiety [Unknown]
  - Pain [Unknown]
  - Diabetes mellitus [Unknown]
  - Injury [Unknown]
  - Impaired quality of life [Unknown]
  - Physical disability [Unknown]
  - Cardiac failure congestive [Unknown]
  - Hypertension [Unknown]
  - Depression [Unknown]

NARRATIVE: CASE EVENT DATE: 2014
